FAERS Safety Report 5871365-9 (Version None)
Quarter: 2008Q3

REPORT INFORMATION
  Report Type: 
  Country: None (occurrence: None)
  Receive Date: 20080902
  Receipt Date: 20080805
  Transmission Date: 20090109
  Serious: Yes (Other)
  Sender: FDA-Public Use
  Company Number: 2008S1007682

PATIENT

DRUGS (1)
  1. SODIUM PHOSPHATE DIBASIC/SODIUM PHOSPHATE MONOBASIC (ANHYDRATE) (SODIU [Suspect]
     Indication: COLONOSCOPY
     Dosage: 169;PO
     Route: 048

REACTIONS (2)
  - CALCINOSIS [None]
  - NEPHROPATHY [None]
